FAERS Safety Report 6315121-6 (Version None)
Quarter: 2009Q3

REPORT INFORMATION
  Report Type: 
  Country: None (occurrence: None)
  Receive Date: 20090817
  Receipt Date: 20090805
  Transmission Date: 20100115
  Serious: Yes (Hospitalization)
  Sender: FDA-Public Use
  Company Number: GXKR2009CH08967

PATIENT
  Age: 81 Year
  Sex: Female

DRUGS (9)
  1. LISINOPRIL [Suspect]
     Indication: ESSENTIAL HYPERTENSION
     Dosage: 20 MG/DAY, ORAL
     Route: 048
     Dates: end: 20090410
  2. AMLODIPINE [Suspect]
     Indication: ESSENTIAL HYPERTENSION
     Dosage: 10 MG, BID, ORAL
     Route: 048
     Dates: end: 20090410
  3. NEXIUM [Concomitant]
  4. INSULIN (INSULIN) [Concomitant]
  5. LASIX [Concomitant]
  6. ENOXAPARIN SODIUM [Concomitant]
  7. ROCEPHIN [Concomitant]
  8. METRONIDAZOLE [Concomitant]
  9. EPINEPHRINE [Concomitant]

REACTIONS (6)
  - ANURIA [None]
  - CONDITION AGGRAVATED [None]
  - DUODENAL ULCER HAEMORRHAGE [None]
  - HAEMOGLOBIN DECREASED [None]
  - METABOLIC ACIDOSIS [None]
  - SHOCK [None]
